FAERS Safety Report 18000039 (Version 2)
Quarter: 2020Q4

REPORT INFORMATION
  Report Type: Spontaneous
  Country: JP (occurrence: JP)
  Receive Date: 20200709
  Receipt Date: 20201105
  Transmission Date: 20210113
  Serious: Yes (Other)
  Sender: FDA-Public Use
  Company Number: JP-ASTRAZENECA-2020SE85659

PATIENT
  Age: 78 Year
  Sex: Female

DRUGS (4)
  1. IMFINZI [Suspect]
     Active Substance: DURVALUMAB
     Indication: NON-SMALL CELL LUNG CANCER
     Route: 041
     Dates: start: 20200602, end: 20200630
  2. MAGMITT [Concomitant]
     Active Substance: MAGNESIUM OXIDE
     Route: 065
  3. OXYCONTIN [Concomitant]
     Active Substance: OXYCODONE HYDROCHLORIDE
     Route: 048
  4. OXINORM [Concomitant]
     Dosage: NUMBER OF SEPARATE DOSAGES UNKNOWN, AS REQUIRED
     Route: 065

REACTIONS (1)
  - Thrombocytopenia [Recovering/Resolving]

NARRATIVE: CASE EVENT DATE: 20200616
